FAERS Safety Report 21937739 (Version 1)
Quarter: 2023Q1

REPORT INFORMATION
  Report Type: Other
  Country: US (occurrence: US)
  Receive Date: 20230201
  Receipt Date: 20230201
  Transmission Date: 20230417
  Serious: No
  Sender: FDA-Public Use
  Company Number: US-DECIPHERA PHARMACEUTICALS LLC-2023US000025

PATIENT
  Sex: Female

DRUGS (1)
  1. QINLOCK [Suspect]
     Active Substance: RIPRETINIB
     Indication: Product used for unknown indication
     Dosage: 150 MILLIGRAM, QD
     Route: 048

REACTIONS (6)
  - Malaise [Unknown]
  - Dizziness [Unknown]
  - Somnolence [Unknown]
  - Sleep deficit [Unknown]
  - Back pain [Unknown]
  - Arthralgia [Unknown]
